FAERS Safety Report 6634378-5 (Version None)
Quarter: 2010Q1

REPORT INFORMATION
  Report Type: 
  Country: None (occurrence: None)
  Receive Date: 20100315
  Receipt Date: 20100301
  Transmission Date: 20100710
  Serious: Yes (Other)
  Sender: FDA-Public Use
  Company Number: JP-ROCHE-617853

PATIENT
  Sex: Female
  Weight: 36.1 kg

DRUGS (12)
  1. TOCILIZUMAB [Suspect]
     Indication: RHEUMATOID ARTHRITIS
     Route: 041
     Dates: start: 20081119, end: 20081119
  2. TOCILIZUMAB [Suspect]
     Route: 041
     Dates: start: 20081201, end: 20081201
  3. TOCILIZUMAB [Suspect]
     Route: 041
     Dates: start: 20081226, end: 20081226
  4. TOCILIZUMAB [Suspect]
     Route: 041
     Dates: start: 20090123, end: 20090123
  5. TOCILIZUMAB [Suspect]
     Route: 041
     Dates: start: 20090223, end: 20090223
  6. TOCILIZUMAB [Suspect]
     Route: 041
     Dates: start: 20090323, end: 20090323
  7. PREDNISOLONE [Suspect]
     Indication: RHEUMATOID ARTHRITIS
     Dosage: DRUG: UNKNOWNDRUG (PREDNISOLONE) FORM: ORAL NOT OTHERWISE SPECIFIED
     Route: 048
     Dates: start: 19990201, end: 20090222
  8. PREDNISOLONE [Suspect]
     Route: 048
     Dates: start: 20090223
  9. NORVASC [Concomitant]
     Route: 048
  10. SINLESTAL [Concomitant]
     Dosage: FORM: FINE GRANULE
     Route: 048
  11. MAGNESIUM OXIDE [Concomitant]
     Route: 048
     Dates: end: 20090201
  12. LASIX [Concomitant]
     Route: 048

REACTIONS (5)
  - CARDIAC FAILURE CONGESTIVE [None]
  - CYSTITIS [None]
  - LIVER DISORDER [None]
  - PLATELET COUNT DECREASED [None]
  - URINARY TRACT INFECTION [None]
